FAERS Safety Report 8068039-5 (Version None)
Quarter: 2012Q1

REPORT INFORMATION
  Report Type: 
  Country: None (occurrence: None)
  Receive Date: 20120124
  Receipt Date: 20110923
  Transmission Date: 20120608
  Serious: No
  Sender: FDA-Public Use
  Company Number: US-AMGEN-USASP2011049476

PATIENT
  Sex: Female

DRUGS (2)
  1. PROLIA [Suspect]
  2. ZOCOR [Concomitant]
     Indication: BLOOD CHOLESTEROL INCREASED
     Dosage: UNK

REACTIONS (6)
  - MUSCLE SPASMS [None]
  - LIVER DISORDER [None]
  - NAUSEA [None]
  - RETCHING [None]
  - VOMITING [None]
  - ANXIETY [None]
